FAERS Safety Report 5169077-2 (Version None)
Quarter: 2006Q4

REPORT INFORMATION
  Report Type: 
  Country: None (occurrence: None)
  Receive Date: 20061211
  Receipt Date: 20061120
  Transmission Date: 20070319
  Serious: Yes (Hospitalization)
  Sender: FDA-Public Use
  Company Number: FR-ROCHE-472203

PATIENT
  Sex: Male

DRUGS (5)
  1. PEGASYS [Suspect]
     Indication: HEPATITIS C
     Route: 065
  2. PEGASYS [Suspect]
     Route: 065
  3. COPEGUS [Suspect]
     Indication: HEPATITIS C
     Route: 048
  4. COPEGUS [Suspect]
     Route: 048
  5. UNSPECIFIED DRUGS [Concomitant]
     Dosage: HIV REGIMEN WAS STOPPED AND RE-INTRODUCED.

REACTIONS (5)
  - CD4 LYMPHOCYTES INCREASED [None]
  - HAEMOGLOBINURIA [None]
  - HAEMOLYTIC ANAEMIA [None]
  - RENAL FAILURE [None]
  - RHABDOMYOLYSIS [None]
